FAERS Safety Report 11103043 (Version 10)
Quarter: 2019Q3

REPORT INFORMATION
  Report Type: Report from Study
  Country: US (occurrence: US)
  Receive Date: 20150511
  Receipt Date: 20190906
  Transmission Date: 20191004
  Serious: Yes (Hospitalization, Other)
  Sender: FDA-Public Use
  Company Number: US-SA-2015SA061517

PATIENT
  Age: 43 Year
  Sex: Male

DRUGS (5)
  1. ACICLOVIR [Concomitant]
     Active Substance: ACYCLOVIR
     Indication: ANTIVIRAL PROPHYLAXIS
     Dosage: UNK
     Dates: start: 20150409
  2. GLICLAZIDE [Concomitant]
     Active Substance: GLICLAZIDE
     Indication: HYPERSENSITIVITY
     Dosage: UNK UNK,PRN
  3. ALEMTUZUMAB [Suspect]
     Active Substance: ALEMTUZUMAB
     Indication: MULTIPLE SCLEROSIS
     Dosage: 12 MG,QD
     Route: 041
     Dates: start: 20150330, end: 20150403
  4. TECFIDERA [Concomitant]
     Active Substance: DIMETHYL FUMARATE
     Indication: MULTIPLE SCLEROSIS
     Dosage: 240 MG,BID
     Dates: start: 201409, end: 20150408
  5. AMBIEN [Concomitant]
     Active Substance: ZOLPIDEM TARTRATE
     Indication: INSOMNIA
     Dosage: 10 MG,QD
     Dates: start: 2004

REACTIONS (12)
  - Pancytopenia [Recovered/Resolved]
  - Lymphopenia [Recovered/Resolved]
  - Dysstasia [Recovered/Resolved]
  - Asthenia [Recovered/Resolved]
  - T-lymphocyte count decreased [Recovered/Resolved]
  - Vitamin B12 decreased [Unknown]
  - Immune system disorder [Recovered/Resolved]
  - Pallor [Recovered/Resolved]
  - Platelet count decreased [Recovered/Resolved]
  - Bradycardia [Not Recovered/Not Resolved]
  - Pyrexia [Unknown]
  - Nuclear magnetic resonance imaging abnormal [Not Recovered/Not Resolved]

NARRATIVE: CASE EVENT DATE: 2015
